FAERS Safety Report 6143465-X (Version None)
Quarter: 2009Q2

REPORT INFORMATION
  Report Type: 
  Country: None (occurrence: None)
  Receive Date: 20090403
  Receipt Date: 20090325
  Transmission Date: 20091009
  Serious: Yes (Other)
  Sender: FDA-Public Use
  Company Number: PHHY2009JP11236

PATIENT
  Sex: Male

DRUGS (7)
  1. ZOMETA [Suspect]
     Indication: METASTASES TO BONE
     Dosage: UNK
     Dates: start: 20081226
  2. ZOMETA [Suspect]
     Dosage: UNK
  3. CASODEX [Concomitant]
     Indication: PROSTATE CANCER
     Dosage: 80 MG/DAY
     Route: 048
     Dates: start: 20081219
  4. URIEF [Concomitant]
     Indication: DYSURIA
     Dosage: 8 MG/DAY
     Route: 048
     Dates: start: 20090120
  5. PURSENNID [Concomitant]
     Indication: CONSTIPATION
     Dosage: 24 MG/DAY
     Route: 048
     Dates: start: 20081219
  6. MAGMITT [Concomitant]
     Indication: CONSTIPATION
     Dosage: 750MG/DAY
     Route: 048
     Dates: start: 20081219
  7. CYANOCOBALAMIN [Concomitant]
     Indication: DIPLEGIA
     Dosage: 1500 MG/DAY
     Route: 048
     Dates: start: 20090109

REACTIONS (6)
  - ALANINE AMINOTRANSFERASE INCREASED [None]
  - ASPARTATE AMINOTRANSFERASE INCREASED [None]
  - BLOOD CALCIUM INCREASED [None]
  - BLOOD LACTATE DEHYDROGENASE INCREASED [None]
  - CONVULSION [None]
  - LOSS OF CONSCIOUSNESS [None]
